FAERS Safety Report 9507315 (Version 2)
Quarter: 2013Q4

REPORT INFORMATION
  Report Type: Spontaneous
  Country: US (occurrence: None)
  Receive Date: 20130904
  Receipt Date: 20131004
  Transmission Date: 20140711
  Serious: Yes (Death, Life-Threatening, Hospitalization)
  Sender: FDA-Public Use
  Company Number: ACO_38153_2013

PATIENT
  Sex: Male

DRUGS (1)
  1. AMPYRA [Suspect]
     Indication: PRODUCT USED FOR UNKNOWN INDICATION
     Route: 048

REACTIONS (3)
  - Respiratory arrest [None]
  - Multiple sclerosis [None]
  - Drug ineffective [None]
